FAERS Safety Report 4471468-X (Version None)
Quarter: 2004Q4

REPORT INFORMATION
  Report Type: 
  Country: None (occurrence: None)
  Receive Date: 20041006
  Receipt Date: 20040920
  Transmission Date: 20050328
  Serious: Yes (Death, Hospitalization)
  Sender: FDA-Public Use
  Company Number: 2004-UK-00928UK

PATIENT
  Age: 61 Year
  Sex: Male

DRUGS (1)
  1. DEXAMETHASONE [Suspect]
     Indication: DYSPNOEA
     Dosage: 12 MG (DAILY)

REACTIONS (6)
  - BLOOD POTASSIUM INCREASED [None]
  - BRONCHOPNEUMONIA [None]
  - CONFUSIONAL STATE [None]
  - HYPERGLYCAEMIA [None]
  - RESPIRATORY TRACT INFECTION [None]
  - SMALL CELL LUNG CANCER STAGE UNSPECIFIED [None]
